FAERS Safety Report 12803700 (Version 1)
Quarter: 2016Q4

REPORT INFORMATION
  Report Type: Spontaneous
  Country: US (occurrence: US)
  Receive Date: 20161003
  Receipt Date: 20161003
  Transmission Date: 20170207
  Serious: No
  Sender: FDA-Public Use
  Company Number: US-TAKEDA-2016TUS017180

PATIENT
  Sex: Female
  Weight: 63.49 kg

DRUGS (10)
  1. BIOTENE                            /03475601/ [Concomitant]
     Indication: DRY MOUTH
     Dosage: UNK
  2. PILOCARPINE. [Concomitant]
     Active Substance: PILOCARPINE
     Indication: DRY MOUTH
     Dosage: UNK, BID
     Route: 048
  3. VAGIFEM [Concomitant]
     Active Substance: ESTRADIOL
     Indication: VULVOVAGINAL DRYNESS
     Dosage: UNK, QD
     Route: 067
  4. VITAMIN D                          /00107901/ [Concomitant]
     Active Substance: ERGOCALCIFEROL
     Dosage: MONTHLY
     Route: 048
  5. ASPRIN [Concomitant]
     Active Substance: ASPIRIN
     Dosage: UNK UNK, QD
     Route: 048
  6. COLCRYS [Suspect]
     Active Substance: COLCHICINE
     Indication: GOUT
     Dosage: 0.6 MG, QD
     Route: 048
  7. LANSOPRAZOLE. [Concomitant]
     Active Substance: LANSOPRAZOLE
     Indication: GASTROOESOPHAGEAL REFLUX DISEASE
     Dosage: UNK
     Route: 048
  8. VITAMIN D                          /00107901/ [Concomitant]
     Active Substance: ERGOCALCIFEROL
     Dosage: UNK UNK, QD
     Route: 048
  9. CALCIUM CITRATE + D [Concomitant]
     Dosage: UNK, QD
     Route: 048
  10. LEVOTHYROIDE [Concomitant]
     Indication: THYROID DISORDER
     Dosage: UNK, QD
     Route: 048

REACTIONS (1)
  - Stomatitis [Not Recovered/Not Resolved]
